FAERS Safety Report 4779408-0 (Version None)
Quarter: 2005Q3

REPORT INFORMATION
  Report Type: 
  Country: None (occurrence: None)
  Receive Date: 20050923
  Receipt Date: 20050916
  Transmission Date: 20060218
  Serious: Yes (Hospitalization)
  Sender: FDA-Public Use
  Company Number: KII-2005-0018643

PATIENT
  Age: 46 Year
  Sex: Male

DRUGS (7)
  1. OXYCODONE HCL [Suspect]
     Dosage: ORAL
     Route: 048
  2. IRON (IRON) [Suspect]
     Dosage: ORAL
     Route: 048
  3. PRIMIDONE [Suspect]
     Dosage: ORAL
     Route: 048
  4. CYCLOBENZAPRINE HCL [Suspect]
     Dosage: ORAL
     Route: 048
  5. VALPROIC ACID [Suspect]
     Dosage: ORAL
     Route: 048
  6. (SSRI) [Suspect]
     Dosage: ORAL
     Route: 048
  7. GASTROINTESTINAL PREPARATION [Suspect]
     Dosage: ORAL
     Route: 048

REACTIONS (2)
  - ABDOMINAL PAIN [None]
  - HAEMATEMESIS [None]
